FAERS Safety Report 7493369-5 (Version None)
Quarter: 2011Q2

REPORT INFORMATION
  Report Type: 
  Country: None (occurrence: None)
  Receive Date: 20110520
  Receipt Date: 20110506
  Transmission Date: 20111010
  Serious: Yes (Death)
  Sender: FDA-Public Use
  Company Number: US-MYLANLABS-2011S1009490

PATIENT
  Age: 37 Year
  Sex: Male

DRUGS (3)
  1. CISPLATIN [Suspect]
     Indication: TESTIS CANCER
     Route: 065
  2. BLENOXANE [Suspect]
     Indication: TESTIS CANCER
     Route: 065
  3. ETOPOSIDE [Suspect]
     Indication: TESTIS CANCER
     Route: 065

REACTIONS (3)
  - CORONARY ARTERY THROMBOSIS [None]
  - SUDDEN CARDIAC DEATH [None]
  - CARDIAC ARREST [None]
